FAERS Safety Report 6427883-8 (Version None)
Quarter: 2009Q4

REPORT INFORMATION
  Report Type: 
  Country: None (occurrence: None)
  Receive Date: 20091105
  Receipt Date: 20091029
  Transmission Date: 20100525
  Serious: Yes (Hospitalization)
  Sender: FDA-Public Use
  Company Number: BR-ASTRAZENECA-2009SE23555

PATIENT
  Age: 79 Year
  Sex: Female
  Weight: 71 kg

DRUGS (8)
  1. ATACAND [Suspect]
     Indication: ARRHYTHMIA
     Route: 048
     Dates: start: 20080101
  2. ATACAND [Suspect]
     Indication: HYPERTENSION
     Route: 048
     Dates: start: 20080101
  3. ATACAND HCT [Suspect]
     Indication: ARRHYTHMIA
     Dosage: 16/12.5 MG
     Route: 048
     Dates: start: 20080101
  4. ATACAND HCT [Suspect]
     Indication: HYPERTENSION
     Dosage: 16/12.5 MG
     Route: 048
     Dates: start: 20080101
  5. ATACAND HCT [Suspect]
     Dosage: 16/12.5 MG
     Route: 048
     Dates: start: 20080701
  6. ATACAND HCT [Suspect]
     Dosage: 16/12.5 MG
     Route: 048
     Dates: start: 20080701
  7. SELOZOK [Suspect]
     Indication: HYPERTENSION
     Route: 048
     Dates: start: 20070101
  8. DILACORON [Concomitant]
     Route: 048
     Dates: start: 20090101

REACTIONS (3)
  - ARRHYTHMIA [None]
  - BLOOD PRESSURE INCREASED [None]
  - HYPERTENSION [None]
